FAERS Safety Report 8674836 (Version 2)
Quarter: 2012Q4

REPORT INFORMATION
  Report Type: 
  Country: DE (occurrence: DE)
  Receive Date: 20120720
  Receipt Date: 20121220
  Transmission Date: 20130627
  Serious: Yes (Hospitalization)
  Sender: FDA-Public Use
  Company Number: DE-MSD-1207DEU000763

PATIENT
  Age: 54 Year
  Sex: Male
  Weight: 96 kg

DRUGS (7)
  1. NOXAFIL [Suspect]
     Indication: ANTIFUNGAL PROPHYLAXIS
     Dosage: 400 mg, bid
     Route: 048
     Dates: start: 20111220, end: 20111227
  2. CIPROFLOXACIN [Suspect]
     Indication: ANTIBIOTIC PROPHYLAXIS
     Dosage: 500 mg, bid
     Route: 048
     Dates: start: 20111213, end: 20120105
  3. EXJADE [Suspect]
     Indication: TRANSFUSION REACTION
     Dosage: 125 mg, bid
     Route: 048
     Dates: start: 20111220, end: 20120105
  4. PANTOPRAZOLE [Concomitant]
     Indication: GASTROOESOPHAGEAL REFLUX DISEASE
     Dosage: 40 mg, qd
     Route: 048
     Dates: start: 201110, end: 20120108
  5. ATACAND [Concomitant]
     Indication: HYPERTENSION
     Dosage: 8 mg, qd
     Route: 048
     Dates: start: 201103, end: 20120108
  6. COTRIM FORTE [Concomitant]
     Indication: ANTIFUNGAL PROPHYLAXIS
     Dosage: 960 mg, qd
     Route: 048
     Dates: start: 201103, end: 20120108
  7. ACYCLOVIR [Concomitant]
     Indication: ANTIVIRAL PROPHYLAXIS
     Dosage: 400 mg, tid
     Route: 048
     Dates: start: 201108, end: 20120105

REACTIONS (10)
  - Acute hepatic failure [Not Recovered/Not Resolved]
  - Urinary tract infection enterococcal [Unknown]
  - Cyanosis [Unknown]
  - Haemodynamic test abnormal [Unknown]
  - Herpes simplex [None]
  - Disease recurrence [None]
  - Hyponatraemia [None]
  - Hypokalaemia [None]
  - Hyperaldosteronism [None]
  - Androgen deficiency [None]
